FAERS Safety Report 9855202 (Version 1)
Quarter: 2014Q1

REPORT INFORMATION
  Report Type: Spontaneous
  Country: NZ (occurrence: None)
  Receive Date: 20140127
  Receipt Date: 20140127
  Transmission Date: 20141002
  Serious: Yes (Other)
  Sender: FDA-Public Use
  Company Number: 2014NZ00061

PATIENT
  Age: 51 Year
  Sex: Female

DRUGS (2)
  1. CITALOPRAM (CITALOPRAM) TABLET [Suspect]
     Indication: PRODUCT USED FOR UNKNOWN INDICATION
  2. QUETIAPINE (QUETIAPINE) [Suspect]
     Indication: PRODUCT USED FOR UNKNOWN INDICATION

REACTIONS (8)
  - Hypothermia [None]
  - Intentional overdose [None]
  - Coma scale abnormal [None]
  - Respiration abnormal [None]
  - Hypotension [None]
  - Hypoaesthesia [None]
  - Immobile [None]
  - Electrocardiogram abnormal [None]
